FAERS Safety Report 23309587 (Version 1)
Quarter: 2023Q4

REPORT INFORMATION
  Report Type: Spontaneous
  Country: FR (occurrence: FR)
  Receive Date: 20231218
  Receipt Date: 20231218
  Transmission Date: 20240109
  Serious: Yes (Hospitalization, Other)
  Sender: FDA-Public Use
  Company Number: None

PATIENT
  Age: 77 Year
  Sex: Female
  Weight: 69 kg

DRUGS (2)
  1. MEKTOVI [Suspect]
     Active Substance: BINIMETINIB
     Indication: Superficial spreading melanoma stage unspecified
     Dosage: 15 MG EVERY 8 HOURS
     Route: 065
     Dates: start: 20230216, end: 202304
  2. BRAFTOVI [Suspect]
     Active Substance: ENCORAFENIB
     Indication: Superficial spreading melanoma stage unspecified
     Dosage: 75 MG EVERY 4 HOURS
     Route: 048
     Dates: start: 20230216, end: 202304

REACTIONS (3)
  - Pulmonary arterial hypertension [Recovering/Resolving]
  - Cardiac failure [Recovering/Resolving]
  - Off label use [Unknown]

NARRATIVE: CASE EVENT DATE: 20230216
